FAERS Safety Report 9681784 (Version 1)
Quarter: 2013Q4

REPORT INFORMATION
  Report Type: Spontaneous
  Country: KE (occurrence: KE)
  Receive Date: 20131111
  Receipt Date: 20131111
  Transmission Date: 20140711
  Serious: Yes (Other)
  Sender: FDA-Public Use
  Company Number: KE-PFIZER INC-2013320347

PATIENT
  Age: 18 Month
  Sex: 0

DRUGS (3)
  1. ORELOX [Suspect]
     Indication: RESPIRATORY TRACT INFECTION
     Dosage: 8 MG/KG, UNK
  2. FOSRENOL [Concomitant]
     Dosage: UNK
  3. PULMICORT [Concomitant]
     Indication: RESPIRATORY TRACT INFECTION
     Dosage: UNK

REACTIONS (1)
  - Grand mal convulsion [Unknown]
